FAERS Safety Report 7058740-4 (Version None)
Quarter: 2010Q4

REPORT INFORMATION
  Report Type: 
  Country: None (occurrence: None)
  Receive Date: 20101022
  Receipt Date: 20101020
  Transmission Date: 20110411
  Serious: Yes (Hospitalization, Other)
  Sender: FDA-Public Use
  Company Number: GB-CEPHALON-2010005540

PATIENT
  Age: 42 Year
  Sex: Female

DRUGS (1)
  1. FENTANYL CITRATE [Suspect]
     Indication: PAIN
     Route: 002

REACTIONS (3)
  - HALLUCINATION [None]
  - SOMNOLENCE [None]
  - UNEVALUABLE EVENT [None]
